FAERS Safety Report 24364316 (Version 2)
Quarter: 2024Q4

REPORT INFORMATION
  Report Type: Report from Study
  Country: US (occurrence: US)
  Receive Date: 20240925
  Receipt Date: 20241003
  Transmission Date: 20250115
  Serious: No
  Sender: ABBVIE
  Company Number: US-ABBVIE-5933545

PATIENT
  Sex: Male

DRUGS (3)
  1. RINVOQ [Suspect]
     Active Substance: UPADACITINIB
     Indication: Product used for unknown indication
     Route: 048
     Dates: start: 202408, end: 20240904
  2. CYCLOSPORINE [Suspect]
     Active Substance: CYCLOSPORINE
     Indication: Product used for unknown indication
     Route: 065
  3. CYCLOSPORINE [Suspect]
     Active Substance: CYCLOSPORINE
     Indication: Product used for unknown indication
     Route: 065

REACTIONS (7)
  - Full blood count increased [Unknown]
  - Drug ineffective [Unknown]
  - Drug level increased [Unknown]
  - Dehydration [Unknown]
  - Arthritis [Unknown]
  - Platelet count decreased [Unknown]
  - Pain [Unknown]

NARRATIVE: CASE EVENT DATE: 20240101
